FAERS Safety Report 19932615 (Version 1)
Quarter: 2021Q4

REPORT INFORMATION
  Report Type: Spontaneous
  Country: US (occurrence: US)
  Receive Date: 20211007
  Receipt Date: 20211007
  Transmission Date: 20220303
  Serious: Yes (Other)
  Sender: FDA-Public Use
  Company Number: None

PATIENT
  Age: 58 Year
  Sex: Female
  Weight: 70.8 kg

DRUGS (1)
  1. TAXOTERE [Suspect]
     Active Substance: DOCETAXEL
     Indication: Breast cancer
     Dosage: ?          OTHER FREQUENCY:EVERY 3 WEEKS;
     Route: 041
     Dates: start: 20211006

REACTIONS (1)
  - Back pain [None]

NARRATIVE: CASE EVENT DATE: 20211006
